FAERS Safety Report 23487693 (Version 1)
Quarter: 2024Q1

REPORT INFORMATION
  Report Type: Spontaneous
  Country: US (occurrence: None)
  Receive Date: 20240205
  Receipt Date: 20240205
  Transmission Date: 20240410
  Serious: Yes (Other)
  Sender: FDA-Public Use
  Company Number: None

PATIENT
  Age: 47 Year
  Sex: Female
  Weight: 99 kg

DRUGS (26)
  1. NEXLIZET [Suspect]
     Active Substance: BEMPEDOIC ACID\EZETIMIBE
  2. NALTREXONE [Concomitant]
     Active Substance: NALTREXONE
  3. LISINOPRIL [Concomitant]
     Active Substance: LISINOPRIL
  4. HYDROXYCHLOROQUINE [Concomitant]
     Active Substance: HYDROXYCHLOROQUINE
  5. Super B-vitamin B complex [Concomitant]
  6. Super C [Concomitant]
  7. MAGNESIUM [Concomitant]
     Active Substance: MAGNESIUM
  8. Alaya Multi Collagen [Concomitant]
  9. CURCUMIN TURMERIC [Concomitant]
  10. Black Pepper Extract [Concomitant]
  11. SELENIUM [Concomitant]
     Active Substance: SELENIUM
  12. ZINC [Concomitant]
     Active Substance: PYRITHIONE ZINC\ZINC\ZINC CHLORIDE
  13. VITAMIN D [Concomitant]
     Active Substance: VITAMIN D NOS
  14. OMEGA-3 FATTY ACIDS [Concomitant]
     Active Substance: OMEGA-3 FATTY ACIDS
  15. VITAMIN A [Concomitant]
     Active Substance: VITAMIN A
  16. COPPER [Concomitant]
     Active Substance: COPPER
  17. ALOE VERA LEAF [Concomitant]
     Active Substance: ALOE VERA LEAF
  18. NAC [Concomitant]
  19. QUERCETIN [Concomitant]
     Active Substance: QUERCETIN
  20. LIPOSOMAL GLUTATHIONE [Concomitant]
  21. Liposomal CoQ10 [Concomitant]
  22. Megaspore Probiotic [Concomitant]
  23. NAD + [Concomitant]
  24. Full spectrum CBD [Concomitant]
  25. DIETARY SUPPLEMENT [Concomitant]
     Active Substance: DIETARY SUPPLEMENT
  26. Progessense Plus Serum [Concomitant]

REACTIONS (6)
  - Dyspnoea [None]
  - Palpitations [None]
  - Heart rate increased [None]
  - Pain in extremity [None]
  - Fluid retention [None]
  - Drug hypersensitivity [None]

NARRATIVE: CASE EVENT DATE: 20240202
